FAERS Safety Report 9727601 (Version 4)
Quarter: 2015Q4

REPORT INFORMATION
  Report Type: Spontaneous
  Country: US (occurrence: US)
  Receive Date: 20131203
  Receipt Date: 20151030
  Transmission Date: 20160305
  Serious: Yes (Hospitalization, Disabling, Other)
  Sender: FDA-Public Use
  Company Number: US-009507513-1312USA001266

PATIENT
  Sex: Female
  Weight: 54.88 kg

DRUGS (4)
  1. FOSAMAX [Suspect]
     Active Substance: ALENDRONATE SODIUM
     Indication: OSTEOPOROSIS
  2. FOSAMAX [Suspect]
     Active Substance: ALENDRONATE SODIUM
     Indication: OSTEOPOROSIS PROPHYLAXIS
     Dosage: 70 MG, QW
     Route: 048
     Dates: start: 2001, end: 2011
  3. ALENDRONATE SODIUM. [Suspect]
     Active Substance: ALENDRONATE SODIUM
     Indication: OSTEOPOROSIS PROPHYLAXIS
     Dosage: 70 MG, UNK
     Route: 048
     Dates: start: 20100322, end: 20111020
  4. VITAMINS (UNSPECIFIED) [Concomitant]
     Active Substance: VITAMINS
     Indication: PRODUCT USED FOR UNKNOWN INDICATION
     Dosage: 1 DF, QD
     Route: 065
     Dates: start: 2000

REACTIONS (18)
  - Enthesopathy [Unknown]
  - Arthritis [Unknown]
  - Carpal tunnel decompression [Unknown]
  - Hip fracture [Not Recovered/Not Resolved]
  - Hysterectomy [Unknown]
  - Bursitis [Unknown]
  - Cataract [Unknown]
  - Iliotibial band syndrome [Unknown]
  - Low turnover osteopathy [Not Recovered/Not Resolved]
  - Femur fracture [Recovered/Resolved]
  - Bone disorder [Unknown]
  - Spinal column stenosis [Not Recovered/Not Resolved]
  - Osteoarthritis [Unknown]
  - Hypercholesterolaemia [Unknown]
  - Chondropathy [Unknown]
  - Back pain [Unknown]
  - Osteoporosis [Not Recovered/Not Resolved]
  - Osteopenia [Unknown]

NARRATIVE: CASE EVENT DATE: 2002
